FAERS Safety Report 4517553-5 (Version None)
Quarter: 2004Q4

REPORT INFORMATION
  Report Type: 
  Country: None (occurrence: None)
  Receive Date: 20041130
  Receipt Date: 20041116
  Transmission Date: 20050328
  Serious: Yes (Hospitalization, Other)
  Sender: FDA-Public Use
  Company Number: US_0411108187

PATIENT
  Age: 48 Year
  Sex: Female
  Weight: 68 kg

DRUGS (7)
  1. ALIMTA [Suspect]
     Indication: NON-SMALL CELL LUNG CANCER METASTATIC
     Dosage: 500 MG/M2 OTHER
     Route: 050
  2. RADIATION THERAPY [Concomitant]
  3. FOLIC ACID [Concomitant]
  4. VITAMIN B-12 [Concomitant]
  5. DEXAMETHASONE [Concomitant]
  6. CLONIDINE [Concomitant]
  7. HYDRALAZINE [Concomitant]

REACTIONS (7)
  - ADRENAL INSUFFICIENCY [None]
  - AZOTAEMIA [None]
  - BRAIN OEDEMA [None]
  - DIALYSIS [None]
  - MALIGNANT HYPERTENSION [None]
  - SCLERODERMA [None]
  - VOMITING PROJECTILE [None]
